FAERS Safety Report 6665573-7 (Version None)
Quarter: 2010Q2

REPORT INFORMATION
  Report Type: 
  Country: None (occurrence: None)
  Receive Date: 20100402
  Receipt Date: 20100324
  Transmission Date: 20101027
  Serious: Yes (Other)
  Sender: FDA-Public Use
  Company Number: SE-PFIZER INC-2010037640

PATIENT
  Age: 69 Year
  Sex: Male
  Weight: 75 kg

DRUGS (6)
  1. LIPITOR [Suspect]
     Dosage: 20 MG, UNK
     Dates: start: 20100219, end: 20100313
  2. METFORMIN [Concomitant]
     Dosage: UNK
  3. TROMBYL [Concomitant]
     Dosage: UNK
  4. LEVOTHYROXINE SODIUM [Concomitant]
     Dosage: UNK
  5. OPTIMOL [Concomitant]
     Dosage: UNK
  6. XALATAN [Concomitant]
     Dosage: UNK

REACTIONS (2)
  - HEART RATE IRREGULAR [None]
  - PALPITATIONS [None]
